FAERS Safety Report 17056521 (Version 1)
Quarter: 2019Q4

REPORT INFORMATION
  Report Type: Spontaneous
  Country: US (occurrence: US)
  Receive Date: 20191121
  Receipt Date: 20191121
  Transmission Date: 20200122
  Serious: No
  Sender: FDA-Public Use
  Company Number: US-NEUROCRINE BIOSCIENCES INC.-2019NBI03406

PATIENT
  Sex: Male

DRUGS (4)
  1. INGREZZA [Suspect]
     Active Substance: VALBENAZINE
     Indication: MUSCULOSKELETAL STIFFNESS
  2. HALDOL [Concomitant]
     Active Substance: HALOPERIDOL
  3. BUSPAR [Concomitant]
     Active Substance: BUSPIRONE HYDROCHLORIDE
  4. INGREZZA [Suspect]
     Active Substance: VALBENAZINE
     Indication: EXTRAPYRAMIDAL DISORDER

REACTIONS (2)
  - Off label use [None]
  - Drug ineffective for unapproved indication [None]
